FAERS Safety Report 8322406-0 (Version None)
Quarter: 2012Q2

REPORT INFORMATION
  Report Type: 
  Country: None (occurrence: None)
  Receive Date: 20120430
  Receipt Date: 20120419
  Transmission Date: 20120825
  Serious: Yes (Other)
  Sender: FDA-Public Use
  Company Number: BR-ASTRAZENECA-2012SE05440

PATIENT
  Age: 85 Year
  Sex: Female

DRUGS (2)
  1. ATACAND HCT [Suspect]
     Dosage: 16/2.5 MG
     Route: 048
     Dates: start: 20111101
  2. ATACAND [Suspect]
     Route: 048
     Dates: end: 20111101

REACTIONS (2)
  - CORONARY ARTERY OCCLUSION [None]
  - OEDEMA PERIPHERAL [None]
